FAERS Safety Report 23996133 (Version 1)
Quarter: 2024Q2

REPORT INFORMATION
  Report Type: Spontaneous
  Country: JP (occurrence: JP)
  Receive Date: 20240620
  Receipt Date: 20240620
  Transmission Date: 20240716
  Serious: Yes (Other)
  Sender: FDA-Public Use
  Company Number: JP-MEIJISEIKA-202403212_P_1

PATIENT
  Age: 78 Year
  Sex: Female

DRUGS (2)
  1. REFLEX [Suspect]
     Active Substance: MIRTAZAPINE
     Dosage: 15 MILLIGRAM
     Route: 048
  2. REFLEX [Suspect]
     Active Substance: MIRTAZAPINE
     Dosage: 30 MILLIGRAM
     Route: 048
     Dates: start: 202310

REACTIONS (3)
  - Inappropriate antidiuretic hormone secretion [Unknown]
  - Blood sodium decreased [Unknown]
  - Hyponatraemia [Unknown]
